FAERS Safety Report 14176181 (Version 2)
Quarter: 2017Q4

REPORT INFORMATION
  Report Type: Spontaneous
  Country: US (occurrence: US)
  Receive Date: 20171109
  Receipt Date: 20171128
  Transmission Date: 20180321
  Serious: Yes (Hospitalization)
  Sender: FDA-Public Use
  Company Number: US-ACTELION-A-US2017-161874

PATIENT
  Age: 3 Month
  Sex: Female

DRUGS (3)
  1. TRACLEER [Suspect]
     Active Substance: BOSENTAN
     Indication: TRANSPOSITION OF THE GREAT VESSELS
     Dosage: 62.5 MG, UNK
     Route: 048
     Dates: start: 20170922
  2. TRACLEER [Suspect]
     Active Substance: BOSENTAN
     Dosage: 15.625 MG, BID
     Route: 048
  3. REVATIO [Concomitant]
     Active Substance: SILDENAFIL CITRATE

REACTIONS (3)
  - Nasopharyngitis [Recovered/Resolved]
  - Pulmonary arterial pressure increased [Recovered/Resolved]
  - Pulmonary arterial hypertension [Unknown]
